FAERS Safety Report 5267972-7 (Version None)
Quarter: 2007Q1

REPORT INFORMATION
  Report Type: 
  Country: None (occurrence: None)
  Receive Date: 20061211
  Receipt Date: 20060716
  Transmission Date: 20070707
  Serious: Yes (Life-Threatening, Other)
  Sender: FDA-Public Use
  Company Number: ENTC2006-0193

PATIENT
  Sex: Male
  Weight: 120 kg

DRUGS (2)
  1. STALEVO (UNKNOWN) (LEVODOPA, CARBIDOPA, ENTACAPONE) [Suspect]
     Indication: PARKINSON'S DISEASE
     Dosage: 300 MG, 3 IN 1 D, ORAL
     Route: 048
     Dates: start: 20060213
  2. REQUIP [Concomitant]

REACTIONS (1)
  - GLOBAL AMNESIA [None]
